FAERS Safety Report 9034736 (Version 2)
Quarter: 2013Q1

REPORT INFORMATION
  Report Type: Spontaneous
  Country: IT (occurrence: None)
  Receive Date: 20130118
  Receipt Date: 20130205
  Transmission Date: 20140127
  Serious: Yes (Hospitalization)
  Sender: FDA-Public Use
  Company Number: DSA_61913_2013

PATIENT
  Age: 81 Year
  Sex: Female

DRUGS (4)
  1. ENAPREN (ENAPREN-ENALAPRIL MALEATE) 5 MG (NOT SPECIFIED) [Suspect]
     Indication: HYPERTENSION
     Route: 048
     Dates: start: 20090101
  2. F2 LASITONE (LASITONE-FUROSEMIDE,SPIRONOLACTONE) (NOT SPECIFIED) [Suspect]
     Indication: HYPERTENSION
     Route: 048
     Dates: start: 20090101, end: 20121008
  3. PANTOPRAZOLE SODIUM [Concomitant]
  4. CARVASIN [Concomitant]

REACTIONS (5)
  - Asthenia [None]
  - Fall [None]
  - Presyncope [None]
  - Hyperkalaemia [None]
  - Heart rate decreased [None]
